FAERS Safety Report 14912365 (Version 1)
Quarter: 2018Q2

REPORT INFORMATION
  Report Type: Spontaneous
  Country: US (occurrence: US)
  Receive Date: 20180501
  Receipt Date: 20180501
  Transmission Date: 20180711
  Serious: Yes (Other)
  Sender: FDA-Public Use
  Company Number: None

PATIENT
  Age: 64 Year
  Sex: Female
  Weight: 85.5 kg

DRUGS (7)
  1. ESTRADIAL [Concomitant]
  2. BACLOFEN. [Suspect]
     Active Substance: BACLOFEN
     Indication: MUSCLE SPASTICITY
     Dosage: ?          QUANTITY:1 TABLET(S);?
     Route: 048
     Dates: start: 20171101, end: 20180401
  3. VITAMIN D [Concomitant]
     Active Substance: CHOLECALCIFEROL
  4. ORENCIA [Concomitant]
     Active Substance: ABATACEPT
  5. METHOTREXATE. [Concomitant]
     Active Substance: METHOTREXATE
  6. BYSTOLIC [Concomitant]
     Active Substance: NEBIVOLOL HYDROCHLORIDE
  7. FOLIC ACD [Concomitant]

REACTIONS (4)
  - Rash [None]
  - Hypersensitivity [None]
  - Inflammation [None]
  - Gluten sensitivity [None]

NARRATIVE: CASE EVENT DATE: 20180101
